FAERS Safety Report 4398008-8 (Version None)
Quarter: 2004Q3

REPORT INFORMATION
  Report Type: 
  Country: None (occurrence: None)
  Receive Date: 20040715
  Receipt Date: 20040601
  Transmission Date: 20050211
  Serious: Yes (Hospitalization)
  Sender: FDA-Public Use
  Company Number: US-BRISTOL-MYERS SQUIBB COMPANY-12602090

PATIENT
  Age: 54 Year
  Sex: Female

DRUGS (4)
  1. TAXOL [Suspect]
     Indication: OVARIAN CANCER
     Dosage: THERAPY DATES: 28-JAN-2004 TO 14-JUL-2004 (SCHEDULED TO)
     Route: 042
     Dates: start: 20040510, end: 20040510
  2. CARBOPLATIN [Concomitant]
     Route: 042
     Dates: start: 20040510, end: 20040510
  3. CIMETIDINE [Concomitant]
     Route: 042
     Dates: start: 20040510, end: 20040510
  4. DIPHENHYDRAMINE [Concomitant]
     Route: 042
     Dates: start: 20040510, end: 20040510

REACTIONS (2)
  - NEUROPATHY PERIPHERAL [None]
  - PLEURISY [None]
